FAERS Safety Report 6819404-2 (Version None)
Quarter: 2010Q3

REPORT INFORMATION
  Report Type: 
  Country: None (occurrence: None)
  Receive Date: 20100707
  Receipt Date: 20100625
  Transmission Date: 20110219
  Serious: Yes (Other)
  Sender: FDA-Public Use
  Company Number: AU-PFIZER INC-2010079229

PATIENT
  Sex: Male

DRUGS (4)
  1. VIAGRA [Suspect]
     Dosage: UNK
  2. XANAX [Concomitant]
     Dosage: UNK
  3. NEXIUM [Concomitant]
     Dosage: UNK
  4. MINIPRESS [Concomitant]
     Indication: PROSTATIC DISORDER
     Dosage: UNK

REACTIONS (2)
  - BLOOD PRESSURE ABNORMAL [None]
  - HYPERTENSION [None]
